FAERS Safety Report 11837692 (Version 1)
Quarter: 2015Q4

REPORT INFORMATION
  Report Type: Spontaneous
  Country: US (occurrence: US)
  Receive Date: 20151215
  Receipt Date: 20151215
  Transmission Date: 20160305
  Serious: Yes (Death)
  Sender: FDA-Public Use
  Company Number: US-BAYER-2015-485216

PATIENT
  Age: 15 Year
  Sex: Female

DRUGS (5)
  1. ACETYLSALICYLIC ACID (} 100 MG) [Suspect]
     Active Substance: ASPIRIN
     Route: 048
  2. METHYLPHENIDATE. [Suspect]
     Active Substance: METHYLPHENIDATE
     Route: 048
  3. DICLOFENAC [Suspect]
     Active Substance: DICLOFENAC
     Route: 048
  4. ACETAMINOPHEN. [Suspect]
     Active Substance: ACETAMINOPHEN
     Route: 048
  5. TRAMADOL. [Suspect]
     Active Substance: TRAMADOL
     Route: 048

REACTIONS (1)
  - Toxicity to various agents [Fatal]
